FAERS Safety Report 6220528-1 (Version None)
Quarter: 2009Q2

REPORT INFORMATION
  Report Type: 
  Country: None (occurrence: None)
  Receive Date: 20090610
  Receipt Date: 20090528
  Transmission Date: 20091009
  Serious: Yes (Hospitalization)
  Sender: FDA-Public Use
  Company Number: JP-AMGEN-US347464

PATIENT
  Sex: Female
  Weight: 39 kg

DRUGS (7)
  1. ENBREL [Suspect]
     Indication: RHEUMATOID ARTHRITIS
     Route: 058
     Dates: start: 20080522
  2. PREDNISOLONE [Suspect]
     Indication: RHEUMATOID ARTHRITIS
     Route: 048
     Dates: start: 20060127
  3. D ALFA [Concomitant]
     Route: 048
  4. SOLON [Concomitant]
     Route: 048
     Dates: start: 20071109
  5. PROTECADIN [Concomitant]
     Route: 048
     Dates: start: 20071109
  6. TACROLIMUS [Concomitant]
     Indication: RHEUMATOID ARTHRITIS
     Route: 048
     Dates: start: 20080418, end: 20080526
  7. CELECOXIB [Concomitant]
     Indication: RHEUMATOID ARTHRITIS
     Route: 048
     Dates: start: 20080606

REACTIONS (2)
  - CEREBRAL INFARCTION [None]
  - VERTEBRAL ARTERY OCCLUSION [None]
